FAERS Safety Report 8299460-8 (Version None)
Quarter: 2012Q2

REPORT INFORMATION
  Report Type: 
  Country: None (occurrence: None)
  Receive Date: 20120417
  Receipt Date: 20120404
  Transmission Date: 20120825
  Serious: Yes (Hospitalization)
  Sender: FDA-Public Use
  Company Number: 2012-001394

PATIENT
  Age: 22 Year
  Sex: Male

DRUGS (4)
  1. ASACOL [Suspect]
     Indication: CROHN'S DISEASE
     Dosage: ORAL
     Route: 048
     Dates: start: 20030201, end: 20070212
  2. CORTISONE (CORITSONE) [Concomitant]
  3. PENTASA [Suspect]
     Indication: CROHN'S DISEASE
     Dosage: ORAL
     Route: 048
     Dates: start: 20010529
  4. OXCARBAZEPINE [Concomitant]

REACTIONS (6)
  - RENAL IMPAIRMENT [None]
  - HAEMODIALYSIS [None]
  - HYDRONEPHROSIS [None]
  - HAEMOGLOBIN DECREASED [None]
  - BLOOD CREATININE INCREASED [None]
  - GLOMERULONEPHRITIS CHRONIC [None]
